FAERS Safety Report 7417642-1 (Version None)
Quarter: 2011Q2

REPORT INFORMATION
  Report Type: 
  Country: None (occurrence: None)
  Receive Date: 20110415
  Receipt Date: 20110405
  Transmission Date: 20111010
  Serious: Yes (Other)
  Sender: FDA-Public Use
  Company Number: PHHY2010DE62403

PATIENT
  Sex: Female
  Weight: 64 kg

DRUGS (3)
  1. ZOMETA [Suspect]
     Indication: BONE DISORDER
     Dosage: 4 MG, EVERY 4 WEEKS
     Route: 042
     Dates: start: 20091019
  2. PACLITAXEL [Concomitant]
     Dosage: 150 MG, WEEKLY
     Dates: start: 20091019
  3. BEVACIZUMAB [Concomitant]
     Dosage: 650 MG, WEEKLY
     Dates: start: 20091019

REACTIONS (3)
  - PLEURAL EFFUSION [None]
  - OSTEONECROSIS OF JAW [None]
  - NEOPLASM MALIGNANT [None]
